FAERS Safety Report 4730614-0 (Version None)
Quarter: 2005Q3

REPORT INFORMATION
  Report Type: 
  Country: None (occurrence: None)
  Receive Date: 20050801
  Receipt Date: 20050727
  Transmission Date: 20060218
  Serious: Yes (Death)
  Sender: FDA-Public Use
  Company Number: FR-SOLVAY-00305002403

PATIENT
  Age: 62 Year
  Sex: Male
  Weight: 120 kg

DRUGS (6)
  1. CREON [Suspect]
     Indication: ILL-DEFINED DISORDER
     Dosage: DAILY DOSE:  UNKNOWN
     Route: 048
     Dates: end: 20040419
  2. DOLIPRANE [Suspect]
     Indication: MYALGIA
     Dosage: DAILY DOSE:  UNKNOWN
     Route: 048
     Dates: start: 20040416, end: 20040417
  3. TRANDATE [Suspect]
     Indication: HYPERTENSION
     Dosage: DAILY DOSE:  UNKNOWN
     Route: 048
     Dates: end: 20040416
  4. MOPRAL [Suspect]
     Indication: GASTRIC ULCER
     Dosage: DAILY DOSE:  UNKNOWN
     Route: 048
     Dates: end: 20040419
  5. AMAREL [Suspect]
     Dosage: DAILY DOSE:  UNKNOWN
     Route: 048
     Dates: end: 20040416
  6. UPFEN [Suspect]
     Indication: MYALGIA
     Dosage: DAILY DOSE:  UNKNOWN
     Route: 048
     Dates: start: 20040416, end: 20040417

REACTIONS (3)
  - MULTI-ORGAN FAILURE [None]
  - NECROTISING FASCIITIS [None]
  - SEPTIC SHOCK [None]
